FAERS Safety Report 5048682-8 (Version None)
Quarter: 2006Q3

REPORT INFORMATION
  Report Type: 
  Country: None (occurrence: None)
  Receive Date: 20060712
  Receipt Date: 20060705
  Transmission Date: 20061208
  Serious: Yes (Other)
  Sender: FDA-Public Use
  Company Number: US-JNJFOC-20060701578

PATIENT
  Sex: Female
  Weight: 58.51 kg

DRUGS (2)
  1. DURAGESIC-100 [Suspect]
     Indication: PAIN
     Route: 062
  2. CYMBALTA [Concomitant]
     Indication: PAIN
     Route: 048

REACTIONS (2)
  - HYPERHIDROSIS [None]
  - THYROIDITIS [None]
